FAERS Safety Report 6013265-X (Version None)
Quarter: 2008Q4

REPORT INFORMATION
  Report Type: 
  Country: None (occurrence: None)
  Receive Date: 20081212
  Receipt Date: 20080618
  Transmission Date: 20090506
  Serious: Yes (Other)
  Sender: FDA-Public Use
  Company Number: 561517

PATIENT
  Age: 46 Year
  Sex: Male

DRUGS (6)
  1. VALIUM [Suspect]
     Indication: BIPOLAR DISORDER
     Dosage: 20 MG 1 PER DAY
  2. ATENOLOL [Concomitant]
  3. EMSAM (SELEGILINE HYDROCHLORIDE) [Concomitant]
  4. GABAPENTIN [Concomitant]
  5. SINGULAIR [Concomitant]
  6. ZYRTEC [Concomitant]

REACTIONS (3)
  - AURA [None]
  - DRUG INEFFECTIVE [None]
  - HYPERTENSION [None]
